FAERS Safety Report 8473551-0 (Version None)
Quarter: 2012Q2

REPORT INFORMATION
  Report Type: 
  Country: None (occurrence: None)
  Receive Date: 20120628
  Receipt Date: 20110517
  Transmission Date: 20120825
  Serious: Yes (Death)
  Sender: FDA-Public Use
  Company Number: US-MYLANLABS-2011S1010276

PATIENT
  Age: 64 Year
  Sex: Male

DRUGS (7)
  1. FOLIC ACID [Concomitant]
  2. CLOZAPINE [Suspect]
     Indication: SCHIZOPHRENIA
     Route: 048
     Dates: end: 20110428
  3. MULTI-VITAMIN [Concomitant]
  4. CLONOPIN [Concomitant]
  5. REGLAN [Concomitant]
  6. ASPIRIN [Concomitant]
  7. FUROSEMIDE [Concomitant]

REACTIONS (3)
  - DEATH [None]
  - PYREXIA [None]
  - ABDOMINAL DISTENSION [None]
